FAERS Safety Report 24545354 (Version 3)
Quarter: 2025Q3

REPORT INFORMATION
  Report Type: Report from Study
  Country: CN (occurrence: CN)
  Receive Date: 20241024
  Receipt Date: 20250810
  Transmission Date: 20251020
  Serious: No
  Sender: ALEXION PHARMACEUTICALS
  Company Number: CN-AstraZeneca-2024A018141

PATIENT
  Age: 66 Year
  Sex: Male

DRUGS (6)
  1. OLAPARIB [Suspect]
     Active Substance: OLAPARIB
     Indication: Malignant peritoneal neoplasm
     Dates: start: 20231124, end: 20240118
  2. OLAPARIB [Suspect]
     Active Substance: OLAPARIB
  3. ABIRATERONE [Concomitant]
     Active Substance: ABIRATERONE
     Indication: Hormone-refractory prostate cancer
  4. PREDNISONE ACETATE [Concomitant]
     Active Substance: PREDNISONE ACETATE
     Indication: Prophylaxis
     Dates: start: 20231208, end: 202401
  5. GOSERELIN [Concomitant]
     Active Substance: GOSERELIN
     Indication: Hormone-refractory prostate cancer
     Dates: start: 20240105, end: 20240105
  6. MIRABEGRON [Concomitant]
     Active Substance: MIRABEGRON
     Indication: Prostate cancer

REACTIONS (1)
  - Anaemia [Not Recovered/Not Resolved]

NARRATIVE: CASE EVENT DATE: 20240116
